FAERS Safety Report 10308543 (Version 1)
Quarter: 2014Q3

REPORT INFORMATION
  Report Type: Spontaneous
  Country: ES (occurrence: ES)
  Receive Date: 20140716
  Receipt Date: 20140716
  Transmission Date: 20150326
  Serious: Yes (Other)
  Sender: FDA-Public Use
  Company Number: PHHY2014ES087031

PATIENT
  Age: 70 Year
  Sex: Female

DRUGS (15)
  1. RIFAMPICIN [Suspect]
     Active Substance: RIFAMPIN
     Indication: ARTHRITIS INFECTIVE
  2. CUBICIN [Suspect]
     Active Substance: DAPTOMYCIN
     Indication: PROTEUS INFECTION
  3. CUBICIN [Suspect]
     Active Substance: DAPTOMYCIN
     Indication: PSEUDOMONAS INFECTION
  4. STEROID ANTIBACTERIALS [Concomitant]
     Active Substance: UNSPECIFIED INGREDIENT
  5. RIFAMPICIN [Suspect]
     Active Substance: RIFAMPIN
     Indication: PROTEUS INFECTION
  6. RIFAMPICIN [Suspect]
     Active Substance: RIFAMPIN
     Indication: PSEUDOMONAS INFECTION
  7. CUBICIN [Suspect]
     Active Substance: DAPTOMYCIN
     Indication: ESCHERICHIA INFECTION
  8. RIFAMPICIN [Suspect]
     Active Substance: RIFAMPIN
     Indication: DEVICE RELATED INFECTION
  9. RIFAMPICIN [Suspect]
     Active Substance: RIFAMPIN
     Indication: OFF LABEL USE
  10. CUBICIN [Suspect]
     Active Substance: DAPTOMYCIN
     Indication: STAPHYLOCOCCAL INFECTION
     Dosage: 11 MG/KG, QD
     Route: 051
  11. CUBICIN [Suspect]
     Active Substance: DAPTOMYCIN
     Indication: DEVICE RELATED INFECTION
  12. RIFAMPICIN [Suspect]
     Active Substance: RIFAMPIN
     Indication: STAPHYLOCOCCAL INFECTION
     Dosage: UNK
  13. RIFAMPICIN [Suspect]
     Active Substance: RIFAMPIN
     Indication: ESCHERICHIA INFECTION
  14. CUBICIN [Suspect]
     Active Substance: DAPTOMYCIN
     Indication: ARTHRITIS INFECTIVE
  15. CUBICIN [Suspect]
     Active Substance: DAPTOMYCIN
     Indication: OFF LABEL USE

REACTIONS (3)
  - Dermal sinus [Unknown]
  - Treatment failure [Unknown]
  - Escherichia infection [Unknown]
